FAERS Safety Report 18985887 (Version 1)
Quarter: 2021Q1

REPORT INFORMATION
  Report Type: Spontaneous
  Country: US (occurrence: US)
  Receive Date: 20210309
  Receipt Date: 20210309
  Transmission Date: 20210420
  Serious: No
  Sender: FDA-Public Use
  Company Number: US-SA-2021SA077701

PATIENT
  Age: 56 Year
  Sex: Female

DRUGS (3)
  1. DUPIXENT [Suspect]
     Active Substance: DUPILUMAB
     Indication: CHRONIC OBSTRUCTIVE PULMONARY DISEASE
  2. DUPIXENT [Suspect]
     Active Substance: DUPILUMAB
     Indication: ASTHMA
     Dosage: 300 MG, QOW
     Route: 058
     Dates: start: 202010
  3. VITA B12 [VITAMIN B12 NOS] [Concomitant]
     Route: 042

REACTIONS (4)
  - Vision blurred [Unknown]
  - Injection site pain [Unknown]
  - Product use issue [Unknown]
  - Product use in unapproved indication [Unknown]
